FAERS Safety Report 5332140-7 (Version None)
Quarter: 2007Q2

REPORT INFORMATION
  Report Type: 
  Country: None (occurrence: None)
  Receive Date: 20070523
  Receipt Date: 20070511
  Transmission Date: 20071010
  Serious: Yes (Other)
  Sender: FDA-Public Use
  Company Number: US-ROCHE-497045

PATIENT
  Sex: Female

DRUGS (3)
  1. BONIVA [Suspect]
     Indication: DRUG USE FOR UNKNOWN INDICATION
     Route: 048
     Dates: start: 20060601, end: 20070301
  2. SYNTHROID [Concomitant]
  3. CIPRO [Concomitant]
     Dosage: PRESCRIBED FOR TEN DAYS
     Dates: start: 20070506

REACTIONS (1)
  - HIP FRACTURE [None]
